FAERS Safety Report 7648839-3 (Version None)
Quarter: 2011Q3

REPORT INFORMATION
  Report Type: 
  Country: None (occurrence: None)
  Receive Date: 20110801
  Receipt Date: 20110722
  Transmission Date: 20111222
  Serious: Yes (Other)
  Sender: FDA-Public Use
  Company Number: PHHY2011AT67233

PATIENT
  Age: 56 Year
  Sex: Female
  Weight: 70 kg

DRUGS (1)
  1. ALLOPURINOL [Suspect]
     Indication: BLOOD URIC ACID INCREASED
     Dosage: 100 MG, DAILY
     Route: 048
     Dates: start: 20110329, end: 20110329

REACTIONS (6)
  - HYPERTENSIVE CRISIS [None]
  - HYPERSENSITIVITY [None]
  - VERTIGO [None]
  - URINE OUTPUT INCREASED [None]
  - SOMNOLENCE [None]
  - CYANOSIS [None]
